FAERS Safety Report 21141857 (Version 1)
Quarter: 2022Q3

REPORT INFORMATION
  Report Type: Spontaneous
  Country: US (occurrence: US)
  Receive Date: 20220728
  Receipt Date: 20220728
  Transmission Date: 20221026
  Serious: No
  Sender: FDA-Public Use
  Company Number: US-Rhythm Pharmaceuticals, Inc.-2021RHM000089

PATIENT
  Age: 16 Year
  Sex: Female

DRUGS (1)
  1. IMCIVREE [Suspect]
     Active Substance: SETMELANOTIDE
     Indication: Product used for unknown indication
     Dosage: 3 MG (0.3 ML)
     Route: 058
     Dates: start: 20211214

REACTIONS (1)
  - Skin hyperpigmentation [Unknown]
